FAERS Safety Report 11480198 (Version 2)
Quarter: 2015Q4

REPORT INFORMATION
  Report Type: Report from Study
  Country: GB (occurrence: GB)
  Receive Date: 20150909
  Receipt Date: 20151119
  Transmission Date: 20160304
  Serious: Yes (Hospitalization)
  Sender: FDA-Public Use
  Company Number: GB-AMGEN-GBRCT2015046696

PATIENT
  Age: 68 Year
  Sex: Male
  Weight: 59.4 kg

DRUGS (10)
  1. DEXAMETHASONE. [Concomitant]
     Active Substance: DEXAMETHASONE
     Indication: HEPATOCELLULAR CARCINOMA
     Dosage: 8 MG, PER CHEMO REGIM
     Route: 042
     Dates: start: 20150415
  2. ASPIRIN                            /00002701/ [Concomitant]
     Active Substance: ASPIRIN
     Indication: TRANSIENT ISCHAEMIC ATTACK
     Dosage: 75 MG, QD
     Route: 048
     Dates: start: 2006
  3. NITRAZEPAM [Concomitant]
     Active Substance: NITRAZEPAM
     Indication: INSOMNIA
     Dosage: 5 MG, QD
     Route: 048
     Dates: start: 1975
  4. SPIRONOLACTONE. [Concomitant]
     Active Substance: SPIRONOLACTONE
     Indication: ASCITES
     Dosage: 100 TO 200 MG, QD
     Route: 048
     Dates: start: 20150424, end: 20150513
  5. CARFILZOMIB [Suspect]
     Active Substance: CARFILZOMIB
     Indication: HEPATOCELLULAR CARCINOMA
     Dosage: 44.8 MG, PER CHEMO REGIM
     Route: 042
     Dates: start: 20150415, end: 20150430
  6. CODEINE [Concomitant]
     Active Substance: CODEINE
     Indication: ABDOMINAL PAIN UPPER
     Dosage: 60 MG, AS NECESSARY
     Route: 048
     Dates: start: 2014
  7. LISINOPRIL. [Concomitant]
     Active Substance: LISINOPRIL
     Indication: HYPERTENSION
     Dosage: 20 MG, QD
     Route: 048
     Dates: start: 2006, end: 20150512
  8. IMIPRAMINE [Concomitant]
     Active Substance: IMIPRAMINE
     Indication: DEPRESSION
     Dosage: 25 MG, BID
     Route: 048
     Dates: start: 2011
  9. PARACETAMOL [Concomitant]
     Active Substance: ACETAMINOPHEN
     Indication: ABDOMINAL PAIN UPPER
     Dosage: 1000 MG, AS NECESSARY
     Route: 048
     Dates: start: 2014
  10. SPIRONOLACTONE. [Concomitant]
     Active Substance: SPIRONOLACTONE
     Indication: OEDEMA PERIPHERAL

REACTIONS (3)
  - Blood bilirubin increased [Not Recovered/Not Resolved]
  - Hyperkalaemia [Recovered/Resolved]
  - Anaemia [Recovered/Resolved]

NARRATIVE: CASE EVENT DATE: 20150512
